FAERS Safety Report 23337053 (Version 1)
Quarter: 2023Q4

REPORT INFORMATION
  Report Type: Spontaneous
  Country: US (occurrence: US)
  Receive Date: 20231226
  Receipt Date: 20231226
  Transmission Date: 20240109
  Serious: No
  Sender: FDA-Public Use
  Company Number: US-SA-SAC20231220000119

PATIENT
  Sex: Male
  Weight: 147.8 kg

DRUGS (3)
  1. DUPIXENT [Suspect]
     Active Substance: DUPILUMAB
     Indication: Illness
     Dosage: 300 MG, QW
     Route: 058
  2. ELIQUIS [Concomitant]
     Active Substance: APIXABAN
     Dosage: 2.5 UNK, BID FOR 7 DAYS
     Dates: start: 20231213
  3. HYDROCODONE [Concomitant]
     Active Substance: HYDROCODONE
     Dosage: 325 UNK, Q6H UNTIL SAT 12/16

REACTIONS (1)
  - Knee operation [Unknown]
